FAERS Safety Report 12511660 (Version 3)
Quarter: 2016Q4

REPORT INFORMATION
  Report Type: Report from Study
  Country: US (occurrence: US)
  Receive Date: 20160630
  Receipt Date: 20161005
  Transmission Date: 20170207
  Serious: Yes (Hospitalization)
  Sender: FDA-Public Use
  Company Number: PHEH2016US016197

PATIENT
  Age: 23 Year
  Sex: Male
  Weight: 56.9 kg

DRUGS (1)
  1. GLEEVEC [Suspect]
     Active Substance: IMATINIB MESYLATE
     Indication: ACUTE LYMPHOCYTIC LEUKAEMIA
     Dosage: QD (DAILY)
     Route: 048
     Dates: start: 20160531

REACTIONS (4)
  - Chest pain [Unknown]
  - Chest discomfort [Unknown]
  - Pyrexia [Unknown]
  - Lung abscess [Unknown]

NARRATIVE: CASE EVENT DATE: 20160602
